FAERS Safety Report 7642856-5 (Version None)
Quarter: 2011Q3

REPORT INFORMATION
  Report Type: 
  Country: None (occurrence: None)
  Receive Date: 20110728
  Receipt Date: 20110725
  Transmission Date: 20111222
  Serious: Yes (Other)
  Sender: FDA-Public Use
  Company Number: DE-PFIZER INC-2011169194

PATIENT
  Age: 62 Year
  Sex: Male

DRUGS (1)
  1. ZIPRASIDONE HYDROCHLORIDE [Suspect]
     Indication: SCHIZOPHRENIA
     Dosage: 80 MG, 2X/DAY
     Dates: start: 20050101

REACTIONS (6)
  - VISUAL ACUITY REDUCED [None]
  - OPEN ANGLE GLAUCOMA [None]
  - MYOPIA [None]
  - CATARACT [None]
  - ASTIGMATISM [None]
  - PSEUDOEXFOLIATION OF LENS CAPSULE [None]
